FAERS Safety Report 7787661-4 (Version None)
Quarter: 2011Q3

REPORT INFORMATION
  Report Type: 
  Country: None (occurrence: None)
  Receive Date: 20110929
  Receipt Date: 20110411
  Transmission Date: 20111222
  Serious: No
  Sender: FDA-Public Use
  Company Number: US-BAYER-2011-032021

PATIENT
  Age: 69 Year
  Sex: Female

DRUGS (2)
  1. OMEPRAZOLE [Concomitant]
     Dosage: UNK
  2. CIPROFLOXACIN [Suspect]
     Indication: GASTRIC MUCOSAL HYPERTROPHY
     Dosage: 500 MG, TABLET
     Route: 048
     Dates: start: 20110209

REACTIONS (3)
  - JOINT SWELLING [None]
  - SKIN WARM [None]
  - ARTHRALGIA [None]
